FAERS Safety Report 14580761 (Version 1)
Quarter: 2018Q1

REPORT INFORMATION
  Report Type: Report from Study
  Country: ES (occurrence: ES)
  Receive Date: 20180228
  Receipt Date: 20180228
  Transmission Date: 20180509
  Serious: Yes (Other)
  Sender: FDA-Public Use
  Company Number: ES-TEVA-2018-ES-861003

PATIENT
  Age: 42 Year
  Sex: Female

DRUGS (4)
  1. ACETYL SALICILIC ACID [Concomitant]
     Indication: CONCOMITANT DISEASE AGGRAVATED
     Route: 048
     Dates: start: 20160719
  2. BROMAZEPAM [Concomitant]
     Active Substance: BROMAZEPAM
     Indication: CONCOMITANT DISEASE AGGRAVATED
     Route: 048
     Dates: start: 20151123
  3. COPAXONE [Suspect]
     Active Substance: GLATIRAMER ACETATE
     Indication: MULTIPLE SCLEROSIS
     Route: 058
     Dates: start: 20160321, end: 20170208
  4. ESCITALOPRAM [Concomitant]
     Active Substance: ESCITALOPRAM OXALATE
     Indication: CONCOMITANT DISEASE PROGRESSION
     Route: 048
     Dates: start: 20151109

REACTIONS (1)
  - Vasculitis [Recovered/Resolved]

NARRATIVE: CASE EVENT DATE: 20161101
